FAERS Safety Report 17158165 (Version 1)
Quarter: 2019Q4

REPORT INFORMATION
  Report Type: Spontaneous
  Country: US (occurrence: US)
  Receive Date: 20191216
  Receipt Date: 20191216
  Transmission Date: 20200122
  Serious: No
  Sender: FDA-Public Use
  Company Number: US-JNJFOC-20191208628

PATIENT
  Age: 26 Year
  Sex: Male
  Weight: 118.04 kg

DRUGS (5)
  1. INVEGA [Suspect]
     Active Substance: PALIPERIDONE
     Indication: PRODUCT USED FOR UNKNOWN INDICATION
     Route: 048
  2. VALIUM [Concomitant]
     Active Substance: DIAZEPAM
     Indication: ANXIETY
     Route: 065
  3. LATUDA [Suspect]
     Active Substance: LURASIDONE HYDROCHLORIDE
     Indication: MAJOR DEPRESSION
     Route: 048
  4. MECLIZINE [Concomitant]
     Active Substance: MECLIZINE HYDROCHLORIDE
     Indication: VERTIGO
     Route: 065
  5. INVEGA [Suspect]
     Active Substance: PALIPERIDONE
     Route: 048

REACTIONS (4)
  - Feeling abnormal [Unknown]
  - Myalgia [Unknown]
  - Muscular weakness [Unknown]
  - Headache [Unknown]

NARRATIVE: CASE EVENT DATE: 20191025
